FAERS Safety Report 8344720-5 (Version None)
Quarter: 2012Q2

REPORT INFORMATION
  Report Type: 
  Country: None (occurrence: None)
  Receive Date: 20120508
  Receipt Date: 20120426
  Transmission Date: 20120825
  Serious: Yes (Hospitalization)
  Sender: FDA-Public Use
  Company Number: JP-BRISTOL-MYERS SQUIBB COMPANY-16303067

PATIENT
  Age: 63 Year
  Sex: Male

DRUGS (1)
  1. HYDREA [Suspect]
     Indication: POLYCYTHAEMIA
     Dosage: 1DF=500X2MG/DAY
     Route: 048

REACTIONS (2)
  - HAEMORRHAGE [None]
  - LACERATION [None]
